FAERS Safety Report 14362585 (Version 1)
Quarter: 2018Q1

REPORT INFORMATION
  Report Type: Spontaneous
  Country: US (occurrence: US)
  Receive Date: 20180105
  Receipt Date: 20180105
  Transmission Date: 20180509
  Serious: Yes (Other)
  Sender: FDA-Public Use
  Company Number: None

PATIENT
  Age: 71 Year
  Sex: Female
  Weight: 54.4 kg

DRUGS (1)
  1. PACLITAXEL. [Suspect]
     Active Substance: PACLITAXEL
     Indication: BREAST CANCER
     Dosage: ?          OTHER FREQUENCY:Q WEEKLY;?
     Route: 040
     Dates: start: 20160204, end: 20171206

REACTIONS (5)
  - Back pain [None]
  - Flushing [None]
  - Throat tightness [None]
  - Dyspnoea [None]
  - Feeling hot [None]

NARRATIVE: CASE EVENT DATE: 20171206
